FAERS Safety Report 4648898-6 (Version None)
Quarter: 2005Q2

REPORT INFORMATION
  Report Type: 
  Country: None (occurrence: None)
  Receive Date: 20050427
  Receipt Date: 20050412
  Transmission Date: 20051028
  Serious: Yes (Other)
  Sender: FDA-Public Use
  Company Number: 05-000260

PATIENT
  Age: 57 Year
  Sex: Female

DRUGS (10)
  1. DORYX [Suspect]
     Dosage: 100 MG
     Dates: start: 19971002
  2. PREMARIN [Suspect]
     Indication: HORMONE REPLACEMENT THERAPY
     Dosage: 0.3MG,
     Dates: start: 19980923, end: 19981027
  3. PREMPRO [Suspect]
     Indication: HORMONE REPLACEMENT THERAPY
     Dosage: 2.5 MG,
     Dates: start: 19981012, end: 19990402
  4. PROMETHAZINE [Concomitant]
  5. PAXIL [Concomitant]
  6. ALPRAZOLAM [Concomitant]
  7. PRILOSEC [Concomitant]
  8. LESCOL ^NOVARTIS^ (FLUVASTATIN SODIUM) [Concomitant]
  9. ACETAMINOPHEN W/CODEINE (CODEINE, PARACETAMOL) TABLET [Concomitant]
  10. ROXICET [Concomitant]

REACTIONS (4)
  - ANXIETY [None]
  - BREAST CANCER FEMALE [None]
  - DEPRESSION [None]
  - FATIGUE [None]
